FAERS Safety Report 14328987 (Version 1)
Quarter: 2017Q4

REPORT INFORMATION
  Report Type: Spontaneous
  Country: US (occurrence: US)
  Receive Date: 20171227
  Receipt Date: 20171227
  Transmission Date: 20180321
  Serious: No
  Sender: FDA-Public Use
  Company Number: US-TELIGENT, INC-IGIL20170835

PATIENT
  Age: 23 Year
  Sex: Male
  Weight: 79.45 kg

DRUGS (1)
  1. ERYTHROMYCIN. [Suspect]
     Active Substance: ERYTHROMYCIN
     Indication: SEBORRHOEIC DERMATITIS
     Dosage: UNKNOWN
     Route: 061
     Dates: start: 20171208, end: 20171222

REACTIONS (2)
  - Product use in unapproved indication [None]
  - Application site pain [Unknown]

NARRATIVE: CASE EVENT DATE: 201712
